FAERS Safety Report 23746171 (Version 1)
Quarter: 2024Q2

REPORT INFORMATION
  Report Type: Other
  Country: US (occurrence: None)
  Receive Date: 20240416
  Receipt Date: 20240416
  Transmission Date: 20240717
  Serious: No
  Sender: FDA-Public Use
  Company Number: US-ROCHE-3546122

PATIENT
  Age: 36 Year
  Sex: Female

DRUGS (1)
  1. OCREVUS [Suspect]
     Active Substance: OCRELIZUMAB
     Indication: Relapsing multiple sclerosis
     Route: 042
     Dates: start: 202108

REACTIONS (9)
  - Hypersomnia [Not Recovered/Not Resolved]
  - Fatigue [Not Recovered/Not Resolved]
  - Mental impairment [Not Recovered/Not Resolved]
  - Hypoaesthesia [Not Recovered/Not Resolved]
  - Anxiety [Not Recovered/Not Resolved]
  - Lymphocyte count abnormal [Unknown]
  - Stress [Unknown]
  - COVID-19 [Unknown]
  - Illness [Unknown]
